FAERS Safety Report 4772243-9 (Version None)
Quarter: 2005Q3

REPORT INFORMATION
  Report Type: 
  Country: None (occurrence: None)
  Receive Date: 20050919
  Receipt Date: 20050408
  Transmission Date: 20060218
  Serious: No
  Sender: FDA-Public Use
  Company Number: US-BRISTOL-MYERS SQUIBB COMPANY-12928248

PATIENT
  Age: 51 Year
  Sex: Female

DRUGS (7)
  1. DEFINITY [Suspect]
     Indication: CHEST PAIN
     Route: 040
     Dates: start: 20050408, end: 20050408
  2. PREVACID [Concomitant]
  3. ESTROGEN [Concomitant]
  4. ZOLOFT [Concomitant]
  5. ATIVAN [Concomitant]
  6. AMBIEN [Concomitant]
  7. ALBUTEROL [Concomitant]

REACTIONS (2)
  - CHEST PAIN [None]
  - RENAL PAIN [None]
